FAERS Safety Report 6150076-9 (Version None)
Quarter: 2009Q2

REPORT INFORMATION
  Report Type: 
  Country: None (occurrence: None)
  Receive Date: 20090407
  Receipt Date: 20090407
  Transmission Date: 20091009
  Serious: No
  Sender: FDA-Public Use
  Company Number: None

PATIENT
  Sex: Male

DRUGS (1)
  1. ROPINIROLE [Suspect]
     Indication: RESTLESS LEGS SYNDROME
     Dosage: 1 MG 1-2 TID PO
     Route: 048
     Dates: start: 20081015

REACTIONS (4)
  - ABDOMINAL DISCOMFORT [None]
  - AGITATION [None]
  - FATIGUE [None]
  - PRODUCT QUALITY ISSUE [None]
